FAERS Safety Report 9957801 (Version 1)
Quarter: 2014Q1

REPORT INFORMATION
  Report Type: Report from Study
  Country: US (occurrence: US)
  Receive Date: 20140304
  Receipt Date: 20140304
  Transmission Date: 20141002
  Serious: No
  Sender: FDA-Public Use
  Company Number: US-ABBVIE-13P-163-1095826-00

PATIENT
  Sex: Female
  Weight: 83.99 kg

DRUGS (8)
  1. HUMIRA [Suspect]
     Indication: PSORIASIS
     Dates: start: 20130425, end: 20130425
  2. HUMIRA [Suspect]
     Dates: start: 20130502
  3. VITAMINS NOS [Suspect]
     Indication: PRODUCT USED FOR UNKNOWN INDICATION
  4. BARACLUDE [Concomitant]
     Indication: CHRONIC HEPATITIS B
  5. BARACLUDE [Concomitant]
     Indication: LIVER DISORDER
  6. ASPIRIN [Concomitant]
     Indication: CARDIAC DISORDER
  7. GENERIC CHOLESTEROL MEDICATION [Concomitant]
     Indication: PRODUCT USED FOR UNKNOWN INDICATION
  8. METHOTREXATE [Concomitant]
     Indication: PSORIASIS

REACTIONS (2)
  - Sleep disorder [Recovered/Resolved]
  - Dizziness [Recovered/Resolved]
